FAERS Safety Report 8406342-7 (Version None)
Quarter: 2012Q2

REPORT INFORMATION
  Report Type: 
  Country: None (occurrence: None)
  Receive Date: 20120604
  Receipt Date: 20120531
  Transmission Date: 20120825
  Serious: Yes (Death)
  Sender: FDA-Public Use
  Company Number: PHHY2012EC046876

PATIENT
  Age: 76 Year
  Sex: Female

DRUGS (1)
  1. ZOLEDRONOC ACID [Suspect]
     Indication: OSTEOPOROSIS
     Dosage: 5 MG/100ML STAT
     Route: 042
     Dates: start: 20110601

REACTIONS (2)
  - GASTRIC CANCER [None]
  - MULTIMORBIDITY [None]
